FAERS Safety Report 10094270 (Version 1)
Quarter: 2014Q2

REPORT INFORMATION
  Report Type: Spontaneous
  Country: US (occurrence: None)
  Receive Date: 20140421
  Receipt Date: 20140421
  Transmission Date: 20141212
  Serious: Yes (Disabling)
  Sender: FDA-Public Use
  Company Number: None

PATIENT
  Age: 50 Year
  Sex: Female
  Weight: 45 kg

DRUGS (1)
  1. CIPROBAY [Suspect]
     Indication: CYSTITIS
     Dates: start: 20131224, end: 20131226

REACTIONS (4)
  - Tendon pain [None]
  - Arthritis reactive [None]
  - Gait disturbance [None]
  - Dysstasia [None]
